FAERS Safety Report 6911441-2 (Version None)
Quarter: 2010Q3

REPORT INFORMATION
  Report Type: 
  Country: None (occurrence: None)
  Receive Date: 20100806
  Receipt Date: 20100728
  Transmission Date: 20110219
  Serious: Yes (Hospitalization)
  Sender: FDA-Public Use
  Company Number: GXKR2010SI08519

PATIENT
  Age: 60 Year
  Sex: Male

DRUGS (8)
  1. AMLOPIN (NGX) [Suspect]
     Indication: HYPERTENSION
     Dosage: 20 MG/DAY
     Route: 048
     Dates: start: 20091201
  2. METOPROLOL [Concomitant]
  3. SINVACOR [Concomitant]
     Dosage: 20 MG, BID
     Route: 065
  4. TRITAZIDE [Concomitant]
  5. NEBIVOLOL HCL [Concomitant]
  6. LANZUL [Concomitant]
  7. ACETYLSALICYLIC ACID SRT [Concomitant]
  8. PLAVIX [Concomitant]

REACTIONS (5)
  - MEDICATION ERROR [None]
  - OVERDOSE [None]
  - PAIN IN EXTREMITY [None]
  - VASCULAR GRAFT [None]
  - VASCULAR STENOSIS [None]
